FAERS Safety Report 5493375-6 (Version None)
Quarter: 2007Q4

REPORT INFORMATION
  Report Type: 
  Country: None (occurrence: None)
  Receive Date: 20071023
  Receipt Date: 20070911
  Transmission Date: 20080405
  Serious: Yes (Death, Hospitalization)
  Sender: FDA-Public Use
  Company Number: PH-ROCHE-516657

PATIENT
  Age: 56 Year
  Sex: Female
  Weight: 65 kg

DRUGS (3)
  1. BLINDED BEVACIZUMAB [Suspect]
     Dosage: 1020 MG, Q3W
     Route: 042
     Dates: start: 20070711
  2. BLINDED PLACEBO [Suspect]
     Dosage: 1020 MG, Q3W
     Route: 042
     Dates: start: 20070711
  3. CAPECITABINE [Suspect]
     Dosage: 3500 MG, UNK
     Route: 065
     Dates: start: 20070711

REACTIONS (1)
  - CEREBRAL ISCHAEMIA [None]
